FAERS Safety Report 9872451 (Version 1)
Quarter: 2014Q1

REPORT INFORMATION
  Report Type: Spontaneous
  Country: US (occurrence: US)
  Receive Date: 20140206
  Receipt Date: 20140206
  Transmission Date: 20141002
  Serious: No
  Sender: FDA-Public Use
  Company Number: US-ACORDA-ACO_100359_2013

PATIENT
  Sex: Female

DRUGS (4)
  1. AMPYRA [Suspect]
     Indication: OFF LABEL USE
     Dosage: UNK,UNK
     Route: 065
     Dates: start: 1996, end: 1997
  2. 4-AP [Suspect]
     Indication: PRODUCT USED FOR UNKNOWN INDICATION
     Dosage: 15MG TID
     Route: 065
  3. 4-AP [Suspect]
     Dosage: 60MG,DAILY
     Route: 065
  4. 4-AP [Suspect]
     Dosage: 45MG,DAILY
     Route: 065

REACTIONS (4)
  - Neck pain [Unknown]
  - Pain in jaw [Unknown]
  - Hypoaesthesia oral [Unknown]
  - Insomnia [Unknown]
